FAERS Safety Report 6882754-8 (Version None)
Quarter: 2010Q3

REPORT INFORMATION
  Report Type: 
  Country: None (occurrence: None)
  Receive Date: 20100727
  Receipt Date: 20100712
  Transmission Date: 20110219
  Serious: Yes (Hospitalization)
  Sender: FDA-Public Use
  Company Number: ACO_01418_2010

PATIENT
  Sex: Female

DRUGS (6)
  1. AMPYRA [Suspect]
     Indication: IMMOBILE
     Dosage: 10 MG 1X/12 HOURS ORAL
     Route: 048
     Dates: start: 20100519
  2. BACLOFEN [Concomitant]
  3. PRISTIQ [Concomitant]
  4. HYDROCHLOROTHIAZIDE [Concomitant]
  5. PROSED [Concomitant]
  6. DIAZEPAM [Concomitant]

REACTIONS (2)
  - CONDITION AGGRAVATED [None]
  - URINARY TRACT INFECTION [None]
